FAERS Safety Report 25207678 (Version 3)
Quarter: 2025Q2

REPORT INFORMATION
  Report Type: Spontaneous
  Country: MA (occurrence: MA)
  Receive Date: 20250417
  Receipt Date: 20250521
  Transmission Date: 20250717
  Serious: Yes (Death, Other)
  Sender: RANBAXY
  Company Number: MA-SUN PHARMACEUTICAL INDUSTRIES LTD-2025R1-503974

PATIENT
  Age: 32 Year
  Sex: Female

DRUGS (1)
  1. BETAMETHASONE [Suspect]
     Active Substance: BETAMETHASONE
     Indication: Skin disorder
     Route: 065

REACTIONS (8)
  - Intentional product misuse [Fatal]
  - Adrenal insufficiency [Fatal]
  - Dermatitis atopic [Unknown]
  - Cushing^s syndrome [Unknown]
  - Dermatitis exfoliative generalised [Unknown]
  - Skin exfoliation [Unknown]
  - Oedema [Unknown]
  - Skin erosion [Unknown]
